FAERS Safety Report 10624843 (Version 1)
Quarter: 2014Q4

REPORT INFORMATION
  Report Type: Report from Study
  Country: US (occurrence: US)
  Receive Date: 20141204
  Receipt Date: 20141204
  Transmission Date: 20150529
  Serious: Yes (Death)
  Sender: FDA-Public Use
  Company Number: US-BRISTOL-MYERS SQUIBB COMPANY-21654884

PATIENT
  Age: 66 Year
  Sex: Male
  Weight: 89.7 kg

DRUGS (10)
  1. SOLU-MEDROL [Concomitant]
     Active Substance: METHYLPREDNISOLONE SODIUM SUCCINATE
  2. BELATACEPT [Suspect]
     Active Substance: BELATACEPT
     Indication: RENAL TRANSPLANT
     Dosage: LAST DOSE ON 21DEC2012
     Dates: end: 20121221
  3. METHYLPREDNISOLONE. [Concomitant]
     Active Substance: METHYLPREDNISOLONE
  4. MEDROL [Concomitant]
     Active Substance: METHYLPREDNISOLONE
  5. DECADRON [Concomitant]
     Active Substance: DEXAMETHASONE
  6. SIMULECT [Concomitant]
     Active Substance: BASILIXIMAB
  7. PROGRAF [Concomitant]
     Active Substance: TACROLIMUS\TACROLIMUS ANHYDROUS
  8. MYCOPHENOLATE MOFETIL. [Concomitant]
     Active Substance: MYCOPHENOLATE MOFETIL
  9. PREDNISONE. [Concomitant]
     Active Substance: PREDNISONE
  10. DACLIZUMAB [Concomitant]
     Active Substance: DACLIZUMAB

REACTIONS (1)
  - Respiratory failure [Fatal]
